FAERS Safety Report 10279384 (Version 2)
Quarter: 2014Q3

REPORT INFORMATION
  Report Type: Report from Study
  Country: DE (occurrence: DE)
  Receive Date: 20140707
  Receipt Date: 20140804
  Transmission Date: 20150326
  Serious: Yes (Other)
  Sender: FDA-Public Use
  Company Number: PHHY2014DE082396

PATIENT
  Sex: Male

DRUGS (2)
  1. AMN107 [Suspect]
     Active Substance: NILOTINIB
     Indication: CHRONIC MYELOID LEUKAEMIA
     Dosage: 600 MG, PER DAY
     Route: 048
     Dates: start: 20130913, end: 20140212
  2. AMN107 [Suspect]
     Active Substance: NILOTINIB
     Dosage: 400 MG, PER DAY
     Route: 048
     Dates: start: 20140213

REACTIONS (1)
  - Electrocardiogram QT prolonged [Recovered/Resolved]

NARRATIVE: CASE EVENT DATE: 20140212
